FAERS Safety Report 9207901 (Version 2)
Quarter: 2013Q2

REPORT INFORMATION
  Report Type: Spontaneous
  Country: US (occurrence: US)
  Receive Date: 20130403
  Receipt Date: 20130610
  Transmission Date: 20140414
  Serious: Yes (Hospitalization, Disabling, Other)
  Sender: FDA-Public Use
  Company Number: US-GLAXOSMITHKLINE-A1017512A

PATIENT
  Age: 70 Year
  Sex: Male
  Weight: 79.6 kg

DRUGS (2)
  1. ARZERRA [Suspect]
     Indication: CHRONIC LYMPHOCYTIC LEUKAEMIA
     Dosage: 1000MG UNKNOWN
     Route: 042
     Dates: start: 20130128, end: 20130208
  2. UNSPECIFIED MEDICATION [Concomitant]

REACTIONS (11)
  - Stevens-Johnson syndrome [Recovered/Resolved]
  - Off label use [Unknown]
  - Erythema [Unknown]
  - Skin exfoliation [Unknown]
  - Skin erosion [Unknown]
  - Skin exfoliation [Unknown]
  - Pain [Unknown]
  - Erythema [Unknown]
  - Mucosal dryness [Unknown]
  - Pruritus [Unknown]
  - Bacteraemia [Unknown]
